FAERS Safety Report 10788014 (Version 2)
Quarter: 2015Q2

REPORT INFORMATION
  Report Type: Spontaneous
  Country: GB (occurrence: None)
  Receive Date: 20150210
  Receipt Date: 20150402
  Transmission Date: 20150821
  Serious: Yes (Death)
  Sender: FDA-Public Use
  Company Number: GB-LHC-2015012

PATIENT
  Age: 65 Year
  Sex: Female

DRUGS (1)
  1. COMPRESSED MEDICAL OXYGEN (OXYGEN) (GAS FOR INHALATION) (VERUM) [Suspect]
     Active Substance: OXYGEN
     Dosage: AMULATORY FLOW 81 PM 6HPD,?

REACTIONS (2)
  - Loss of consciousness [None]
  - Device malfunction [None]

NARRATIVE: CASE EVENT DATE: 20150127
